FAERS Safety Report 17915920 (Version 1)
Quarter: 2020Q2

REPORT INFORMATION
  Report Type: Spontaneous
  Country: US (occurrence: US)
  Receive Date: 20200618
  Receipt Date: 20200618
  Transmission Date: 20200714
  Serious: No
  Sender: FDA-Public Use
  Company Number: None

PATIENT
  Age: 22 Year
  Sex: Female
  Weight: 58.5 kg

DRUGS (2)
  1. ELURYNG [Suspect]
     Active Substance: ETHINYL ESTRADIOL\ETONOGESTREL
     Indication: MENTAL DISORDER
     Dates: start: 20200101, end: 20200301
  2. ELURYNG [Suspect]
     Active Substance: ETHINYL ESTRADIOL\ETONOGESTREL
     Indication: CONTRACEPTION
     Dates: start: 20200101, end: 20200301

REACTIONS (7)
  - Muscle spasms [None]
  - Coagulopathy [None]
  - Device dislocation [None]
  - Acne [None]
  - Product substitution issue [None]
  - Haemorrhage [None]
  - Migraine [None]

NARRATIVE: CASE EVENT DATE: 20200101
